FAERS Safety Report 5610339-X (Version None)
Quarter: 2008Q1

REPORT INFORMATION
  Report Type: 
  Country: None (occurrence: None)
  Receive Date: 20080128
  Receipt Date: 20080123
  Transmission Date: 20080703
  Serious: Yes (Other)
  Sender: FDA-Public Use
  Company Number: MESA-2008-001

PATIENT
  Age: 42 Year
  Sex: Male
  Weight: 87.5442 kg

DRUGS (4)
  1. CANASA [Suspect]
     Indication: CROHN'S DISEASE
     Dosage: 1000 MG, RECTAL
     Route: 054
     Dates: start: 20071101, end: 20071201
  2. PRILOSEC (OMEPRAZOLE MAGNESIUM) [Concomitant]
  3. BIAXIN [Concomitant]
  4. IBUPROFEN [Concomitant]

REACTIONS (1)
  - PANCREATITIS ACUTE [None]
